FAERS Safety Report 10494262 (Version 3)
Quarter: 2015Q1

REPORT INFORMATION
  Report Type: Spontaneous
  Country: US (occurrence: US)
  Receive Date: 20141003
  Receipt Date: 20150211
  Transmission Date: 20150720
  Serious: Yes (Death, Life-Threatening, Hospitalization, Disabling, Other)
  Sender: FDA-Public Use
  Company Number: US-GLAXOSMITHKLINE-A1090746A

PATIENT
  Age: 65 Year
  Sex: Male
  Weight: 81.92 kg

DRUGS (1)
  1. VENTOLIN HFA [Suspect]
     Active Substance: ALBUTEROL SULFATE
     Indication: PRODUCT USED FOR UNKNOWN INDICATION
     Dosage: 90MCG, 2  PUFFS Q4H PRN
     Route: 048
     Dates: start: 20110321, end: 20140825

REACTIONS (11)
  - Cirrhosis alcoholic [Fatal]
  - Pyrexia [Fatal]
  - Sepsis syndrome [Fatal]
  - Condition aggravated [Fatal]
  - Palliative care [Fatal]
  - Cholangitis acute [Fatal]
  - Abdominal pain [Fatal]
  - Leukocytosis [Fatal]
  - Encephalopathy [Fatal]
  - Acute kidney injury [Fatal]
  - Hepatorenal syndrome [Fatal]

NARRATIVE: CASE EVENT DATE: 20140825
